FAERS Safety Report 11090032 (Version 1)
Quarter: 2015Q2

REPORT INFORMATION
  Report Type: Spontaneous
  Country: JP (occurrence: None)
  Receive Date: 20150501
  Receipt Date: 20150501
  Transmission Date: 20150821
  Serious: Yes (Other)
  Sender: FDA-Public Use
  Company Number: 2015SEB00028

PATIENT
  Age: 47 Year
  Sex: Female
  Weight: 57 kg

DRUGS (4)
  1. POTASSIUM IODIDE [Concomitant]
     Active Substance: POTASSIUM IODIDE
  2. HYDROCORTISONE. [Suspect]
     Active Substance: HYDROCORTISONE
     Indication: THYROTOXIC CRISIS
     Route: 042
  3. METHIMAZOLE. [Concomitant]
     Active Substance: METHIMAZOLE
  4. INSULIN [Concomitant]
     Active Substance: INSULIN NOS

REACTIONS (3)
  - Critical illness myopathy [None]
  - Rhabdomyolysis [None]
  - Quadriplegia [None]
